FAERS Safety Report 15647824 (Version 2)
Quarter: 2018Q4

REPORT INFORMATION
  Report Type: Spontaneous
  Country: US (occurrence: US)
  Receive Date: 20181122
  Receipt Date: 20181212
  Transmission Date: 20190205
  Serious: No
  Sender: FDA-Public Use
  Company Number: US-ASTRAZENECA-2018SF40920

PATIENT
  Age: 20 Year
  Sex: Female
  Weight: 68 kg

DRUGS (2)
  1. PULMICORT FLEXHALER [Suspect]
     Active Substance: BUDESONIDE
     Indication: ASTHMA
     Route: 055
     Dates: start: 2017
  2. PROAIR RESCUE INHALER [Concomitant]
     Indication: ASTHMA
     Dosage: AS REQUIRED
     Route: 055

REACTIONS (2)
  - Throat irritation [Unknown]
  - Product quality issue [Unknown]

NARRATIVE: CASE EVENT DATE: 2017
